FAERS Safety Report 18998935 (Version 1)
Quarter: 2021Q1

REPORT INFORMATION
  Report Type: Report from Study
  Country: None (occurrence: CA)
  Receive Date: 20210312
  Receipt Date: 20210312
  Transmission Date: 20210420
  Serious: Yes (Other)
  Sender: FDA-Public Use
  Company Number: CA-ABBVIE-21K-028-3809555-00

PATIENT
  Sex: Male

DRUGS (1)
  1. HUMIRA [Suspect]
     Active Substance: ADALIMUMAB
     Indication: RHEUMATOID ARTHRITIS
     Route: 058
     Dates: start: 20141127

REACTIONS (5)
  - Contusion [Unknown]
  - Productive cough [Not Recovered/Not Resolved]
  - Road traffic accident [Unknown]
  - Osteoarthritis [Recovering/Resolving]
  - Post procedural swelling [Not Recovered/Not Resolved]

NARRATIVE: CASE EVENT DATE: 2020
